FAERS Safety Report 19332452 (Version 3)
Quarter: 2021Q3

REPORT INFORMATION
  Report Type: Spontaneous
  Country: IT (occurrence: IT)
  Receive Date: 20210529
  Receipt Date: 20210901
  Transmission Date: 20211014
  Serious: Yes (Other)
  Sender: FDA-Public Use
  Company Number: IT-ACCORD-226049

PATIENT
  Age: 16 Year
  Sex: Female

DRUGS (1)
  1. ZOLOFT [Suspect]
     Active Substance: SERTRALINE HYDROCHLORIDE
     Indication: AFFECTIVE DISORDER
     Dosage: DECREASED, TITRATED

REACTIONS (3)
  - Photosensitivity reaction [Recovered/Resolved]
  - Myoclonic epilepsy [Recovered/Resolved]
  - Seizure [Recovered/Resolved]
